FAERS Safety Report 14923116 (Version 1)
Quarter: 2018Q2

REPORT INFORMATION
  Report Type: Spontaneous
  Country: US (occurrence: US)
  Receive Date: 20180503
  Receipt Date: 20180503
  Transmission Date: 20180711
  Serious: Yes (Death)
  Sender: FDA-Public Use
  Company Number: None

PATIENT
  Age: 63 Year
  Sex: Male

DRUGS (2)
  1. ZELBORAF [Suspect]
     Active Substance: VEMURAFENIB
  2. COTELLIC [Suspect]
     Active Substance: COBIMETINIB

REACTIONS (1)
  - Death [None]

NARRATIVE: CASE EVENT DATE: 20180426
